FAERS Safety Report 19563630 (Version 1)
Quarter: 2021Q3

REPORT INFORMATION
  Report Type: Spontaneous
  Country: JP (occurrence: JP)
  Receive Date: 20210716
  Receipt Date: 20210716
  Transmission Date: 20211014
  Serious: Yes (Other)
  Sender: FDA-Public Use
  Company Number: JP-SUN PHARMACEUTICAL INDUSTRIES LTD-2021R1-304040

PATIENT
  Age: 74 Year
  Sex: Male

DRUGS (3)
  1. DEGARELIX [Concomitant]
     Active Substance: DEGARELIX
     Indication: ANDROGEN THERAPY
     Dosage: UNK
     Route: 065
  2. DOCETAXEL. [Suspect]
     Active Substance: DOCETAXEL
     Indication: TESTIS CANCER
     Dosage: 75 MILLIGRAM/SQ. METER, QD/ EVERY 21 DAYS/ 12 CYCLES
     Route: 065
  3. DOCETAXEL. [Suspect]
     Active Substance: DOCETAXEL
     Indication: METASTASES TO LUNG

REACTIONS (1)
  - Disease progression [Unknown]
